FAERS Safety Report 6228275-7 (Version None)
Quarter: 2009Q2

REPORT INFORMATION
  Report Type: 
  Country: None (occurrence: None)
  Receive Date: 20090612
  Receipt Date: 20090604
  Transmission Date: 20091009
  Serious: Yes (Disabling)
  Sender: FDA-Public Use
  Company Number: PHHY2009PH21981

PATIENT
  Sex: Female

DRUGS (1)
  1. RASILEZ [Suspect]
     Route: 048

REACTIONS (2)
  - DYSKINESIA [None]
  - STOMATITIS [None]
